FAERS Safety Report 10042654 (Version 1)
Quarter: 2014Q1

REPORT INFORMATION
  Report Type: Spontaneous
  Country: US (occurrence: None)
  Receive Date: 20140325
  Receipt Date: 20140325
  Transmission Date: 20141002
  Serious: Yes (Other)
  Sender: FDA-Public Use
  Company Number: 2014-00044

PATIENT
  Sex: Female

DRUGS (1)
  1. ZICAM ALLERGY RELIEF NASAL GEL [Suspect]

REACTIONS (1)
  - Ageusia [None]
